FAERS Safety Report 9174550 (Version 2)
Quarter: 2013Q2

REPORT INFORMATION
  Report Type: Spontaneous
  Country: US (occurrence: US)
  Receive Date: 20130320
  Receipt Date: 20130404
  Transmission Date: 20140414
  Serious: No
  Sender: FDA-Public Use
  Company Number: US-PFIZER INC-2013091673

PATIENT
  Age: 43 Year
  Sex: Male
  Weight: 95.24 kg

DRUGS (7)
  1. NEURONTIN [Suspect]
     Indication: NERVE INJURY
     Dosage: 100 MG, 3X/DAY
     Dates: start: 201302, end: 201303
  2. NEURONTIN [Suspect]
     Indication: HYPOAESTHESIA
  3. NEURONTIN [Suspect]
     Indication: PAIN IN EXTREMITY
  4. NEURONTIN [Suspect]
     Indication: BACK PAIN
  5. NORVASC [Concomitant]
     Indication: HYPERTENSION
     Dosage: 10 MG, 1X/DAY
  6. ATORVASTATIN [Concomitant]
     Indication: BLOOD CHOLESTEROL ABNORMAL
     Dosage: 20 MG, 1X/DAY
  7. HYDROCHLOROTHIAZIDE [Concomitant]
     Indication: FLUID RETENTION
     Dosage: 12.5 MG, UNK

REACTIONS (2)
  - Pain in extremity [Not Recovered/Not Resolved]
  - Hypoaesthesia [Not Recovered/Not Resolved]
